FAERS Safety Report 5481941-3 (Version None)
Quarter: 2007Q4

REPORT INFORMATION
  Report Type: 
  Country: None (occurrence: None)
  Receive Date: 20071010
  Receipt Date: 20071005
  Transmission Date: 20080405
  Serious: Yes (Hospitalization, Disabling, Other)
  Sender: FDA-Public Use
  Company Number: US-MERCK-0701USA01862

PATIENT
  Age: 56 Year
  Sex: Female
  Weight: 108 kg

DRUGS (17)
  1. FOSAMAX [Suspect]
     Indication: MENOPAUSE
     Route: 048
     Dates: start: 19990717, end: 20001101
  2. FOSAMAX [Suspect]
     Route: 048
     Dates: start: 20001121, end: 20050305
  3. ALDACTONE [Concomitant]
     Route: 065
  4. MAGONATE [Concomitant]
     Route: 065
  5. GLUCOPHAGE [Concomitant]
     Route: 065
  6. LOPID [Concomitant]
     Route: 065
  7. OS-CAL [Concomitant]
     Route: 065
  8. SINGULAIR [Concomitant]
     Route: 048
  9. KLOR-CON [Concomitant]
     Route: 065
  10. LIPITOR [Concomitant]
     Route: 065
  11. PREDNISONE [Concomitant]
     Route: 065
  12. PRILOSEC [Concomitant]
     Route: 065
  13. ZAROXOLYN [Concomitant]
     Route: 065
  14. PERSANTINE [Concomitant]
     Route: 065
  15. ACTOS [Concomitant]
     Route: 065
  16. COUMADIN [Concomitant]
     Route: 065
  17. VIOXX [Concomitant]
     Route: 048

REACTIONS (30)
  - ANAEMIA [None]
  - ARTERIOSCLEROSIS [None]
  - BACK PAIN [None]
  - BLOOD CREATININE INCREASED [None]
  - BLOOD UREA INCREASED [None]
  - CAROTID ARTERY DISEASE [None]
  - CHEST DISCOMFORT [None]
  - CONTUSION [None]
  - DYSPNOEA [None]
  - ELECTROCARDIOGRAM ABNORMAL [None]
  - FACTOR V LEIDEN MUTATION [None]
  - FALL [None]
  - FAT NECROSIS [None]
  - GANGRENE [None]
  - HUMERUS FRACTURE [None]
  - HYPERCOAGULATION [None]
  - LIMB INJURY [None]
  - LYMPHANGITIS [None]
  - MUSCLE HAEMORRHAGE [None]
  - OSTEONECROSIS [None]
  - PALPITATIONS [None]
  - PHLEBITIS [None]
  - PULMONARY EMBOLISM [None]
  - ROTATOR CUFF SYNDROME [None]
  - SPONDYLOLISTHESIS [None]
  - STAPHYLOCOCCAL INFECTION [None]
  - SYNOVIAL CYST [None]
  - TONGUE BLACK HAIRY [None]
  - VENOUS STASIS [None]
  - VENOUS THROMBOSIS LIMB [None]
